FAERS Safety Report 4577749-3 (Version None)
Quarter: 2005Q1

REPORT INFORMATION
  Report Type: 
  Country: None (occurrence: None)
  Receive Date: 20050209
  Receipt Date: 20050126
  Transmission Date: 20050727
  Serious: Yes (Death, Hospitalization)
  Sender: FDA-Public Use
  Company Number: 2004AL000568

PATIENT
  Age: 66 Year
  Sex: Female

DRUGS (5)
  1. KADIAN [Suspect]
     Dosage: PO
     Route: 048
  2. ALPRAZOLAM [Suspect]
     Dosage: PO
     Route: 048
  3. TEMAZEPAM [Suspect]
     Dosage: PO
     Route: 048
  4. RAMIPRIL [Suspect]
     Dosage: PO
     Route: 048
  5. VALSARTAN [Suspect]
     Dosage: PO
     Route: 048

REACTIONS (7)
  - AGGRESSION [None]
  - CARDIAC ARREST [None]
  - COMA [None]
  - COMPLETED SUICIDE [None]
  - DRUG TOXICITY [None]
  - INTENTIONAL MISUSE [None]
  - RESPIRATORY ARREST [None]
